FAERS Safety Report 17328736 (Version 1)
Quarter: 2020Q1

REPORT INFORMATION
  Report Type: Spontaneous
  Country: DE (occurrence: DE)
  Receive Date: 20200127
  Receipt Date: 20200127
  Transmission Date: 20200409
  Serious: Yes (Other)
  Sender: FDA-Public Use
  Company Number: DE-MYLANLABS-2020M1008568

PATIENT
  Age: 87 Year
  Sex: Female
  Weight: 63 kg

DRUGS (2)
  1. BUPRENORPHINE. [Suspect]
     Active Substance: BUPRENORPHINE
     Indication: PAIN
     Dosage: 5 MICROGRAM, QH
     Route: 062
  2. TEMAZEPAM. [Concomitant]
     Active Substance: TEMAZEPAM
     Indication: SLEEP DISORDER
     Route: 048

REACTIONS (3)
  - Persecutory delusion [Not Recovered/Not Resolved]
  - Anxiety disorder [Not Recovered/Not Resolved]
  - Nervousness [Not Recovered/Not Resolved]
